FAERS Safety Report 15346580 (Version 3)
Quarter: 2021Q3

REPORT INFORMATION
  Report Type: Spontaneous
  Country: US (occurrence: US)
  Receive Date: 20180904
  Receipt Date: 20210816
  Transmission Date: 20211014
  Serious: Yes (Other)
  Sender: FDA-Public Use
  Company Number: US-PFIZER INC-2018355140

PATIENT
  Age: 62 Year
  Sex: Female

DRUGS (1)
  1. XELJANZ XR [Suspect]
     Active Substance: TOFACITINIB CITRATE
     Dosage: 11 MG,
     Route: 048

REACTIONS (4)
  - Rheumatoid arthritis [Unknown]
  - Intentional product misuse [Unknown]
  - Pain [Unknown]
  - Therapeutic product effect incomplete [Unknown]
